FAERS Safety Report 9805866 (Version 1)
Quarter: 2014Q1

REPORT INFORMATION
  Report Type: Spontaneous
  Country: US (occurrence: US)
  Receive Date: 20140109
  Receipt Date: 20140109
  Transmission Date: 20141002
  Serious: Yes (Hospitalization)
  Sender: FDA-Public Use
  Company Number: US-TEVA-455162USA

PATIENT
  Age: 40 Year
  Sex: Female

DRUGS (2)
  1. TREANDA [Suspect]
     Indication: DIFFUSE LARGE B-CELL LYMPHOMA
     Route: 042
  2. RITUXIMAB [Concomitant]
     Indication: DIFFUSE LARGE B-CELL LYMPHOMA
     Dosage: FOUR WEEKLY DOSES
     Route: 065

REACTIONS (2)
  - Eosinophilic pneumonia [Unknown]
  - Off label use [Unknown]
